FAERS Safety Report 8271535-9 (Version None)
Quarter: 2012Q2

REPORT INFORMATION
  Report Type: 
  Country: None (occurrence: None)
  Receive Date: 20120410
  Receipt Date: 20120403
  Transmission Date: 20120825
  Serious: No
  Sender: FDA-Public Use
  Company Number: US-PFIZER INC-2012084963

PATIENT
  Age: 45 Year
  Sex: Female

DRUGS (2)
  1. ZYVOX [Suspect]
     Dosage: UNK
  2. ZOLOFT [Concomitant]
     Dosage: UNK

REACTIONS (3)
  - NAUSEA [None]
  - BLOOD PRESSURE DECREASED [None]
  - DIZZINESS [None]
